FAERS Safety Report 6190689-1 (Version None)
Quarter: 2009Q2

REPORT INFORMATION
  Report Type: 
  Country: None (occurrence: None)
  Receive Date: 20090514
  Receipt Date: 20090512
  Transmission Date: 20091009
  Serious: Yes (Other)
  Sender: FDA-Public Use
  Company Number: DE-BRISTOL-MYERS SQUIBB COMPANY-14559330

PATIENT
  Age: 58 Year
  Sex: Female

DRUGS (8)
  1. ORENCIA [Suspect]
     Indication: RHEUMATOID ARTHRITIS
     Dosage: TOTAL NUMBER OF CYCLES-10
     Route: 042
     Dates: start: 20080401
  2. AZATHIOPRINE [Concomitant]
     Indication: COLITIS
     Dosage: 1 DF- 150 (UNITS NOT SPECIFIED)
     Route: 048
     Dates: start: 20070101
  3. CORTICOSTEROID [Concomitant]
     Dosage: 1 DOSAGE FORM = 40-80MG FOR WEEKS ALREADY
  4. PREDNISOLONE [Concomitant]
     Indication: RHEUMATOID ARTHRITIS
     Route: 048
     Dates: start: 19960101
  5. PREDNISOLONE [Concomitant]
     Indication: COLITIS
     Route: 048
     Dates: start: 19960101
  6. AMITRIPTLINE HYDROCHLORIDE TAB [Concomitant]
     Indication: FIBROMYALGIA
     Dosage: 1 DF- 25 (UNITS NOT SPECIFIED)
     Route: 048
     Dates: start: 20080101
  7. KINZALKOMB [Concomitant]
     Indication: HYPERTENSION
     Dosage: 1 DF- 40/12.5 (UNIT NOT SPECIFIED)
     Route: 048
     Dates: start: 20080101
  8. METOPROLOL [Concomitant]
     Indication: HYPERTENSION
     Dosage: 1 DF- 100 (UNIT NOT SPECIFIED)
     Route: 048
     Dates: start: 20060101

REACTIONS (1)
  - COLITIS ULCERATIVE [None]
